FAERS Safety Report 9361736 (Version 5)
Quarter: 2014Q1

REPORT INFORMATION
  Report Type: Report from Study
  Country: US (occurrence: US)
  Receive Date: 20130621
  Receipt Date: 20140205
  Transmission Date: 20141002
  Serious: Yes (Hospitalization, Other)
  Sender: FDA-Public Use
  Company Number: US-MILLENNIUM PHARMACEUTICALS, INC.-2013-04819

PATIENT
  Age: 11 Year
  Sex: Male
  Weight: 56.9 kg

DRUGS (9)
  1. VELCADE [Suspect]
     Indication: ACUTE MYELOID LEUKAEMIA
     Dosage: 1.3 MG/M2, OVER 3-5 SECONDS ON DAYS 1, 4 AND 8
     Route: 040
     Dates: start: 20130326
  2. VELCADE [Suspect]
     Dosage: 1.3 MG/M2, CYCLIC, OVER 3-5 SECONDS ON DAYS 1, 4 AND 8
     Route: 042
     Dates: start: 20130326
  3. VELCADE [Suspect]
     Dosage: 1 MG/M2, OVER 3-5 SECONDS ON DAYS 1, 4 AND 8, DUE TO PANCREATITIS IN INDUCTION CYCLE ONE, REDUCED
     Route: 040
     Dates: end: 20130521
  4. VELCADE [Suspect]
     Dosage: 1 MG/M2, CYCLIC, OVER 3-5 SECONDS ON DAYS 1, 4 AND 8, DOSE REDUCED.
     Route: 042
     Dates: end: 20130521
  5. CYTARABINE [Suspect]
     Indication: ACUTE MYELOID LEUKAEMIA
     Dosage: 20-70MG (AGE BASED DOSING), ON DAY 1
     Route: 037
     Dates: start: 20130326, end: 20130522
  6. CYTARABINE [Suspect]
     Dosage: 100 MG/M2, BID OVER 1-3 HOURS ON DAYS 1-5
     Route: 042
     Dates: start: 20130326, end: 20130521
  7. ETOPOSIDE [Suspect]
     Indication: ACUTE MYELOID LEUKAEMIA
     Dosage: 100 MG/M2, OVER 60-120 MINUTES ON DAYS 1-5
     Route: 042
     Dates: start: 20130326, end: 20130518
  8. ETOPOSIDE [Suspect]
     Dosage: 150 MG/M2, OVER 60-120 MINUTES ON DAYS 1-5
     Route: 042
     Dates: start: 20130326, end: 20130518
  9. DAUNORUBICIN HYDROCHLORIDE [Suspect]
     Indication: ACUTE MYELOID LEUKAEMIA
     Dosage: 50 MG/M2, OVER 1-15 MINUTES ON DAYS 1, 3 AND 5
     Route: 042
     Dates: start: 20130326, end: 20130518

REACTIONS (5)
  - Colitis [Recovered/Resolved]
  - Small intestinal obstruction [Recovering/Resolving]
  - Lipase increased [Unknown]
  - Amylase increased [Unknown]
  - Pancreatitis [Recovering/Resolving]
